FAERS Safety Report 9299217 (Version 1)
Quarter: 2013Q2

REPORT INFORMATION
  Report Type: Spontaneous
  Country: US (occurrence: US)
  Receive Date: 20130520
  Receipt Date: 20130520
  Transmission Date: 20140414
  Serious: No
  Sender: FDA-Public Use
  Company Number: US-009507513-1305USA002097

PATIENT
  Sex: Male

DRUGS (2)
  1. CORICIDIN HBP CHEST CONGESTION AND COUGH [Suspect]
     Indication: INCREASED UPPER AIRWAY SECRETION
     Dosage: UNK, UNKNOWN
     Route: 048
  2. CORICIDIN HBP CHEST CONGESTION AND COUGH [Suspect]
     Indication: COUGH

REACTIONS (1)
  - Drug ineffective [Unknown]
